FAERS Safety Report 9675416 (Version 1)
Quarter: 2013Q4

REPORT INFORMATION
  Report Type: Spontaneous
  Country: GB (occurrence: GB)
  Receive Date: 20131107
  Receipt Date: 20131107
  Transmission Date: 20140711
  Serious: Yes (Other)
  Sender: FDA-Public Use
  Company Number: GB-MYLANLABS-2013S1024057

PATIENT
  Age: 20 Year
  Sex: Female
  Weight: 59.87 kg

DRUGS (9)
  1. MIRTAZAPINE [Suspect]
     Indication: ANXIETY
     Route: 048
  2. MIRTAZAPINE [Suspect]
     Indication: ASPERGER^S DISORDER
     Route: 048
  3. MIRTAZAPINE [Suspect]
     Indication: DEPRESSION
     Route: 048
  4. MIRTAZAPINE [Suspect]
     Indication: PSYCHOTIC DISORDER
     Route: 048
  5. CYCLIZINE [Concomitant]
     Indication: PRODUCT USED FOR UNKNOWN INDICATION
  6. MACROGOL [Concomitant]
     Indication: PRODUCT USED FOR UNKNOWN INDICATION
  7. MALIC ACID [Concomitant]
     Indication: PRODUCT USED FOR UNKNOWN INDICATION
  8. PREGABALIN [Concomitant]
     Indication: PRODUCT USED FOR UNKNOWN INDICATION
  9. SERTRALINE [Concomitant]
     Indication: PRODUCT USED FOR UNKNOWN INDICATION

REACTIONS (5)
  - Aggression [Unknown]
  - Intentional self-injury [Unknown]
  - Frustration [Unknown]
  - Mood altered [Unknown]
  - Anger [Unknown]
